FAERS Safety Report 18664033 (Version 1)
Quarter: 2020Q4

REPORT INFORMATION
  Report Type: Spontaneous
  Country: US (occurrence: US)
  Receive Date: 20201225
  Receipt Date: 20201225
  Transmission Date: 20210114
  Serious: No
  Sender: FDA-Public Use
  Company Number: US-BAUSCH-BL-2020-038148

PATIENT
  Age: 35 Year

DRUGS (1)
  1. SILIQ [Suspect]
     Active Substance: BRODALUMAB
     Indication: PRODUCT USED FOR UNKNOWN INDICATION
     Dosage: 210MG/1.5ML
     Route: 058

REACTIONS (3)
  - Blood immunoglobulin G increased [Unknown]
  - Plasma cell disorder [Unknown]
  - Light chain analysis increased [Unknown]
